FAERS Safety Report 20723459 (Version 1)
Quarter: 2022Q2

REPORT INFORMATION
  Report Type: Spontaneous
  Country: GB (occurrence: GB)
  Receive Date: 20220419
  Receipt Date: 20220419
  Transmission Date: 20220721
  Serious: Yes (Death)
  Sender: FDA-Public Use
  Company Number: GB-AMGEN-GBRSP2022065830

PATIENT

DRUGS (6)
  1. PEGFILGRASTIM [Suspect]
     Active Substance: PEGFILGRASTIM
     Indication: Prophylaxis
     Dosage: UNK
     Route: 065
  2. CISPLATIN [Concomitant]
     Active Substance: CISPLATIN
     Indication: Germ cell cancer
     Dosage: UNK
  3. ACTINOMYCIN D [Concomitant]
     Active Substance: DACTINOMYCIN
     Indication: Germ cell cancer
     Dosage: 1 MILLIGRAM/SQ. METER
  4. METHOTREXATE [Concomitant]
     Active Substance: METHOTREXATE
     Indication: Germ cell cancer
     Dosage: 5-8 G/M2 DAY 1
  5. PACLITAXEL [Concomitant]
     Active Substance: PACLITAXEL
     Indication: Germ cell cancer
     Dosage: 80 MILLIGRAM/SQ. METER DAYS 1, 8, 15
  6. OXALIPLATIN [Concomitant]
     Active Substance: OXALIPLATIN
     Indication: Germ cell cancer
     Dosage: 85 MILLIGRAM/SQ. METER DAYS 4 AND 8

REACTIONS (1)
  - Death [Fatal]
